FAERS Safety Report 18340181 (Version 3)
Quarter: 2020Q4

REPORT INFORMATION
  Report Type: Spontaneous
  Country: BR (occurrence: BR)
  Receive Date: 20201002
  Receipt Date: 20201108
  Transmission Date: 20210113
  Serious: Yes (Hospitalization, Other)
  Sender: FDA-Public Use
  Company Number: BR-009507513-2009BRA011138

PATIENT
  Age: 82 Year
  Sex: Female
  Weight: 66 kg

DRUGS (4)
  1. INVANZ [Suspect]
     Active Substance: ERTAPENEM SODIUM
     Dosage: 1 GRAM
     Route: 042
     Dates: start: 2020, end: 20200927
  2. INVANZ [Suspect]
     Active Substance: ERTAPENEM SODIUM
     Indication: PROPHYLAXIS
     Dosage: 1 GRAM
     Route: 042
     Dates: start: 20200919, end: 20200927
  3. CLOPAMIDE [Concomitant]
     Active Substance: CLOPAMIDE
     Route: 042
  4. TARGOCID [Concomitant]
     Active Substance: TEICOPLANIN
     Indication: PROPHYLAXIS
     Dosage: TOTAL DAILY DOSE: 400 MG
     Route: 042
     Dates: start: 20200727, end: 20200928

REACTIONS (12)
  - Diarrhoea [Recovered/Resolved]
  - Malaise [Unknown]
  - Nausea [Unknown]
  - Central venous catheterisation [Unknown]
  - Headache [Unknown]
  - Faeces soft [Unknown]
  - Toxic encephalopathy [Unknown]
  - Decreased appetite [Unknown]
  - Fatigue [Unknown]
  - Loss of consciousness [Recovered/Resolved]
  - Tremor [Recovered/Resolved]
  - Asthenia [Recovered/Resolved]

NARRATIVE: CASE EVENT DATE: 2020
